FAERS Safety Report 4619683-6 (Version None)
Quarter: 2005Q1

REPORT INFORMATION
  Report Type: 
  Country: None (occurrence: None)
  Receive Date: 20050317
  Receipt Date: 20050317
  Transmission Date: 20050727
  Serious: Yes (Other)
  Sender: FDA-Public Use
  Company Number: None

PATIENT
  Age: 63 Year
  Sex: Female
  Weight: 79.3795 kg

DRUGS (2)
  1. VIOXX [Suspect]
     Indication: ARTHRITIS
     Dates: start: 20040210, end: 20040429
  2. VIOXX [Suspect]
     Indication: PLANTAR FASCIITIS
     Dates: start: 20040210, end: 20040429

REACTIONS (5)
  - DYSPNOEA [None]
  - GASTROINTESTINAL DISORDER [None]
  - HYPERTENSION [None]
  - OEDEMA PERIPHERAL [None]
  - OLIGURIA [None]
